FAERS Safety Report 7991591-2 (Version None)
Quarter: 2011Q4

REPORT INFORMATION
  Report Type: 
  Country: None (occurrence: None)
  Receive Date: 20111219
  Receipt Date: 20110922
  Transmission Date: 20120403
  Serious: No
  Sender: FDA-Public Use
  Company Number: US-ALLERGAN-1112619US

PATIENT
  Age: 88 Year
  Sex: Female

DRUGS (2)
  1. REFRESH CLASSIC [Concomitant]
     Indication: DRY EYE
  2. LUMIGAN [Suspect]
     Indication: GLAUCOMA
     Dosage: 1 GTT, QHS
     Route: 047
     Dates: start: 20110801

REACTIONS (2)
  - ABNORMAL SENSATION IN EYE [None]
  - SCLERAL HYPERAEMIA [None]
